FAERS Safety Report 9368714 (Version 1)
Quarter: 2013Q2

REPORT INFORMATION
  Report Type: Spontaneous
  Country: IT (occurrence: IT)
  Receive Date: 20130626
  Receipt Date: 20130626
  Transmission Date: 20140414
  Serious: Yes (Other)
  Sender: FDA-Public Use
  Company Number: IT-ASTRAZENECA-2013SE47180

PATIENT
  Age: 30671 Day
  Sex: Female

DRUGS (9)
  1. SEROQUEL [Suspect]
     Indication: ABNORMAL BEHAVIOUR
     Route: 048
     Dates: start: 20130201, end: 20130415
  2. SEROQUEL [Suspect]
     Indication: ABNORMAL BEHAVIOUR
     Route: 048
     Dates: start: 20130416, end: 20130421
  3. SEROQUEL [Suspect]
     Indication: ABNORMAL BEHAVIOUR
     Route: 048
     Dates: start: 201305
  4. ENALAPRIL [Concomitant]
     Route: 048
  5. BISOPROLOL [Concomitant]
     Route: 048
  6. METFORMIN [Concomitant]
  7. HALCION [Concomitant]
     Route: 048
  8. SERENASE [Concomitant]
     Dosage: 2MG/ML ORAL DROPS SOLUTION
     Route: 048
  9. CARDIOASPIRIN [Concomitant]

REACTIONS (2)
  - Confusional state [Recovering/Resolving]
  - Sopor [Recovering/Resolving]
